FAERS Safety Report 15331371 (Version 2)
Quarter: 2019Q1

REPORT INFORMATION
  Report Type: Spontaneous
  Country: US (occurrence: US)
  Receive Date: 20180829
  Receipt Date: 20190107
  Transmission Date: 20190417
  Serious: Yes (Hospitalization, Other)
  Sender: FDA-Public Use
  Company Number: US-DSJP-DSU-2017-138852

PATIENT

DRUGS (2)
  1. BENICAR [Suspect]
     Active Substance: OLMESARTAN MEDOXOMIL
     Indication: PRODUCT USED FOR UNKNOWN INDICATION
     Dosage: 20 MG, UNK
     Dates: end: 20120606
  2. BENICAR HCT [Suspect]
     Active Substance: HYDROCHLOROTHIAZIDE\OLMESARTAN MEDOXOMIL
     Indication: PRODUCT USED FOR UNKNOWN INDICATION
     Dosage: 40-12.5 MG, QD
     Route: 048
     Dates: start: 20080507, end: 20120420

REACTIONS (6)
  - Acute kidney injury [Recovering/Resolving]
  - Large intestine polyp [Recovering/Resolving]
  - Haemorrhoids [Unknown]
  - Sprue-like enteropathy [Recovering/Resolving]
  - Diverticulum [Unknown]
  - Gastritis [Unknown]

NARRATIVE: CASE EVENT DATE: 2012
